FAERS Safety Report 11694176 (Version 3)
Quarter: 2017Q2

REPORT INFORMATION
  Report Type: Report from Study
  Country: JP (occurrence: JP)
  Receive Date: 20151103
  Receipt Date: 20170607
  Transmission Date: 20170829
  Serious: Yes (Death, Hospitalization)
  Sender: FDA-Public Use
  Company Number: JP-INCYTE CORPORATION-2015IN005501

PATIENT

DRUGS (7)
  1. JAKAVI [Suspect]
     Active Substance: RUXOLITINIB
     Indication: MYELOFIBROSIS
     Dosage: 5 MG, BID
     Route: 048
     Dates: start: 20140929, end: 20150826
  2. ALKERAN [Concomitant]
     Active Substance: MELPHALAN
     Indication: PRODUCT USED FOR UNKNOWN INDICATION
     Dosage: UNK
     Route: 048
     Dates: start: 20141021, end: 20150513
  3. HYDREA [Concomitant]
     Active Substance: HYDROXYUREA
     Indication: MYELOFIBROSIS
  4. PREDONINE [Concomitant]
     Active Substance: PREDNISOLONE
     Indication: MYELOFIBROSIS
  5. HYDREA [Concomitant]
     Active Substance: HYDROXYUREA
     Indication: PRODUCT USED FOR UNKNOWN INDICATION
     Dosage: 500 MG, UNK
     Route: 048
     Dates: start: 20141021, end: 20150513
  6. ALKERAN [Concomitant]
     Active Substance: MELPHALAN
     Indication: MYELOFIBROSIS
  7. PREDONINE [Concomitant]
     Active Substance: PREDNISOLONE
     Indication: PRODUCT USED FOR UNKNOWN INDICATION
     Dosage: UNK
     Route: 048
     Dates: start: 20141003, end: 20150826

REACTIONS (4)
  - Myelofibrosis [Fatal]
  - Pneumocystis jirovecii pneumonia [Not Recovered/Not Resolved]
  - Thrombocytopenia [Not Recovered/Not Resolved]
  - Blood pressure diastolic decreased [Unknown]

NARRATIVE: CASE EVENT DATE: 20150330
